FAERS Safety Report 14627970 (Version 8)
Quarter: 2018Q3

REPORT INFORMATION
  Report Type: Spontaneous
  Country: US (occurrence: US)
  Receive Date: 20180312
  Receipt Date: 20180910
  Transmission Date: 20181010
  Serious: Yes (Hospitalization)
  Sender: FDA-Public Use
  Company Number: US-ACTELION-A-NJ2018-166107

PATIENT
  Age: 62 Year
  Sex: Female
  Weight: 70 kg

DRUGS (19)
  1. UPTRAVI [Suspect]
     Active Substance: SELEXIPAG
     Dosage: 200 MCG, BID
     Route: 048
  2. FUROSEMIDE. [Concomitant]
     Active Substance: FUROSEMIDE
  3. LEVOTHYROXINE. [Concomitant]
     Active Substance: LEVOTHYROXINE
  4. ASPIRIN. [Concomitant]
     Active Substance: ASPIRIN
     Dosage: UNK
     Dates: start: 20100209
  5. DIPHENOXYLATE HYDROCHLORIDE AND ATROPINE SULFATE [Concomitant]
     Active Substance: ATROPINE SULFATE\DIPHENOXYLATE HYDROCHLORIDE
     Dosage: UNK
     Dates: start: 20170724
  6. INSULIN GLARGINE [Concomitant]
     Active Substance: INSULIN GLARGINE
     Dosage: UNK
     Dates: start: 20170108
  7. REMODULIN [Suspect]
     Active Substance: TREPROSTINIL
     Indication: PULMONARY ARTERIAL HYPERTENSION
     Dosage: 10 NG/KG, PER MIN
     Route: 042
     Dates: end: 20180112
  8. LATANOPROST. [Concomitant]
     Active Substance: LATANOPROST
     Dosage: UNK
     Dates: start: 20171222
  9. TRAMADOL. [Concomitant]
     Active Substance: TRAMADOL
     Dosage: UNK
     Dates: start: 20180514
  10. LIDOCAINE VISCOUS [Concomitant]
     Active Substance: LIDOCAINE HYDROCHLORIDE
     Dosage: UNK
     Dates: start: 20170724
  11. ALPRAZOLAM. [Concomitant]
     Active Substance: ALPRAZOLAM
     Dosage: UNK
     Dates: start: 20180514
  12. LIDOCAINE PRILOCAINE BIOGARAN [Concomitant]
     Dosage: UNK
     Dates: start: 20170515
  13. PANTOPRAZOLE [Concomitant]
     Active Substance: PANTOPRAZOLE
  14. ONDANSETRON [Concomitant]
     Active Substance: ONDANSETRON
     Dosage: UNK
     Dates: start: 20170724
  15. CALCIUM ACETATE. [Concomitant]
     Active Substance: CALCIUM ACETATE
     Dosage: UNK
     Dates: start: 20170328
  16. UPTRAVI [Suspect]
     Active Substance: SELEXIPAG
     Indication: PULMONARY ARTERIAL HYPERTENSION
     Dosage: 1400 MCG, BID
     Route: 048
     Dates: start: 20171117, end: 20180829
  17. REMODULIN [Suspect]
     Active Substance: TREPROSTINIL
     Dosage: 20 NG/KG, PER MIN
     Route: 042
     Dates: start: 20170328
  18. ATORVASTATIN [Concomitant]
     Active Substance: ATORVASTATIN
     Dosage: UNK
     Dates: start: 20170905
  19. CHOLECALCIFEROL [Concomitant]
     Active Substance: CHOLECALCIFEROL
     Dosage: UNK
     Dates: start: 20110511

REACTIONS (33)
  - Pain in jaw [Unknown]
  - Dizziness postural [Not Recovered/Not Resolved]
  - Gastroenteritis viral [Unknown]
  - Drug dose omission [Unknown]
  - Peritonitis [Not Recovered/Not Resolved]
  - Nausea [Not Recovered/Not Resolved]
  - Wound drainage [Not Recovered/Not Resolved]
  - Headache [Unknown]
  - Depressed mood [Unknown]
  - Paracentesis [Recovered/Resolved]
  - Haemorrhage [Recovered/Resolved]
  - Tooth fracture [Recovered/Resolved]
  - Abdominal pain [Not Recovered/Not Resolved]
  - Abdominal wall wound [Not Recovered/Not Resolved]
  - Hospitalisation [Unknown]
  - Syncope [Recovered/Resolved]
  - Condition aggravated [Not Recovered/Not Resolved]
  - Face injury [Recovered/Resolved]
  - Decreased appetite [Not Recovered/Not Resolved]
  - Liver abscess [Unknown]
  - Myalgia [Not Recovered/Not Resolved]
  - Ocular hypertension [Unknown]
  - Skin lesion [Unknown]
  - Vomiting [Not Recovered/Not Resolved]
  - Abdominal tenderness [Not Recovered/Not Resolved]
  - Wound infection staphylococcal [Unknown]
  - Diarrhoea [Unknown]
  - Dyspnoea exertional [Recovered/Resolved]
  - Lethargy [Not Recovered/Not Resolved]
  - Wound complication [Not Recovered/Not Resolved]
  - Dizziness [Unknown]
  - Muscle spasms [Unknown]
  - Therapy cessation [Unknown]

NARRATIVE: CASE EVENT DATE: 2017
